FAERS Safety Report 18362635 (Version 2)
Quarter: 2021Q2

REPORT INFORMATION
  Report Type: Other
  Country: CA (occurrence: CA)
  Receive Date: 20201008
  Receipt Date: 20210611
  Transmission Date: 20210717
  Serious: Yes (Hospitalization, Other)
  Sender: FDA-Public Use
  Company Number: CA-APOTEX-2020AP019201

PATIENT
  Age: 55 Year
  Sex: Female
  Weight: 49 kg

DRUGS (21)
  1. POTASSIUM CHLORIDE. [Suspect]
     Active Substance: POTASSIUM CHLORIDE
     Indication: HYPOKALAEMIA
     Dosage: 40 MILLIGRAM, BID
     Route: 065
  2. FUROSEMIDE. [Suspect]
     Active Substance: FUROSEMIDE
     Indication: CARDIAC FAILURE CONGESTIVE
     Dosage: 40 MILLIGRAM, BID
     Route: 065
  3. BORTEZOMIB. [Concomitant]
     Active Substance: BORTEZOMIB
     Indication: PLASMA CELL MYELOMA
     Dosage: UNK
     Route: 065
  4. DEXAMETHASONE. [Suspect]
     Active Substance: DEXAMETHASONE
     Indication: PLASMA CELL MYELOMA
     Dosage: 12 MILLIGRAM, Q.WK.
     Route: 065
  5. EPLERENONE. [Suspect]
     Active Substance: EPLERENONE
     Indication: CARDIAC FAILURE CONGESTIVE
     Dosage: 25 MILLIGRAM, QD
     Route: 065
  6. FEBUXOSTAT. [Concomitant]
     Active Substance: FEBUXOSTAT
     Indication: GOUT
     Dosage: 40 MILLIGRAM, QD
     Route: 065
  7. PANTOPRAZOLE [Concomitant]
     Active Substance: PANTOPRAZOLE
     Indication: GASTROOESOPHAGEAL REFLUX DISEASE
     Dosage: 20 MILLIGRAM, BID
     Route: 065
  8. SENOKOT [Concomitant]
     Active Substance: SENNOSIDES
     Indication: CONSTIPATION
     Dosage: 17.2 MILLIGRAM, QD
     Route: 065
  9. LACTULOSE. [Concomitant]
     Active Substance: LACTULOSE
     Indication: CONSTIPATION
     Dosage: 30 MILLIGRAM
     Route: 065
  10. ONDANSETRON [Concomitant]
     Active Substance: ONDANSETRON
     Indication: PROPHYLAXIS
     Dosage: 16 MILLIGRAM
     Route: 065
  11. CANDESARTAN. [Suspect]
     Active Substance: CANDESARTAN
     Indication: HYPERTENSION
     Dosage: 4 MILLIGRAM, QD
     Route: 048
  12. ENTECAVIR. [Concomitant]
     Active Substance: ENTECAVIR
     Indication: HEPATITIS B
     Dosage: 0.5 MILLIGRAM, QD
     Route: 065
  13. LORAZEPAM. [Concomitant]
     Active Substance: LORAZEPAM
     Indication: ANXIETY
     Dosage: 1 MILLIGRAM, QD
     Route: 065
  14. ACYCLOVIR [ACICLOVIR] [Concomitant]
     Active Substance: ACYCLOVIR
     Indication: PROPHYLAXIS
     Dosage: 400 MILLIGRAM, BID
     Route: 065
  15. FILGRASTIM [Concomitant]
     Active Substance: FILGRASTIM
     Indication: NEUTROPENIA
     Dosage: 300 MICROGRAM, Q.WK.
     Route: 065
  16. FILGRASTIM [Concomitant]
     Active Substance: FILGRASTIM
     Dosage: 300 MICROGRAM, QD
     Route: 065
  17. PROCHLORPERAZINE. [Concomitant]
     Active Substance: PROCHLORPERAZINE
     Indication: PROPHYLAXIS
     Dosage: 10 MILLIGRAM, QID
     Route: 065
  18. DEXAMETHASONE. [Suspect]
     Active Substance: DEXAMETHASONE
     Dosage: 12 MILLIGRAM, QD
     Route: 065
  19. METOLAZONE. [Suspect]
     Active Substance: METOLAZONE
     Indication: CARDIAC FAILURE
     Dosage: 125 MILLIGRAM, QD
     Route: 065
  20. POMALYST [Suspect]
     Active Substance: POMALIDOMIDE
     Indication: PLASMA CELL MYELOMA
     Dosage: 2 MILLIGRAM
     Route: 048
  21. NEUPOGEN [Concomitant]
     Active Substance: FILGRASTIM
     Indication: NEUTROPENIA
     Dosage: 300 MILLIGRAM, Q.WK.
     Route: 065

REACTIONS (2)
  - Cardiac failure [Recovered/Resolved]
  - Cardiac failure congestive [Recovered/Resolved]
